FAERS Safety Report 17871627 (Version 2)
Quarter: 2024Q1

REPORT INFORMATION
  Report Type: Spontaneous
  Country: US (occurrence: US)
  Receive Date: 20200608
  Receipt Date: 20240326
  Transmission Date: 20240410
  Serious: Yes (Hospitalization, Other)
  Sender: FDA-Public Use
  Company Number: US-AMNEAL PHARMACEUTICALS-2020-AMRX-01555

PATIENT
  Age: 25 Year
  Sex: Female
  Weight: 97 kg

DRUGS (3)
  1. ACTIVELLA [Suspect]
     Active Substance: ESTRADIOL\NORETHINDRONE ACETATE
     Indication: Endometriosis
     Dosage: 1 DOSAGE FORM, QD
     Route: 048
     Dates: start: 20180906, end: 20181127
  2. ELAGOLIX [Suspect]
     Active Substance: ELAGOLIX
     Indication: Endometriosis
     Dosage: 400 MILLIGRAM, DAILY
     Route: 048
     Dates: start: 20180906, end: 20181127
  3. PROVENTIL HFA [SALBUTAMOL] [Concomitant]
     Indication: Bronchial hyperreactivity
     Dosage: 108 MICROGRAM, AS REQUIRED
     Dates: start: 201702

REACTIONS (2)
  - Pituitary tumour [Recovered/Resolved]
  - Pituitary apoplexy [Recovered/Resolved]

NARRATIVE: CASE EVENT DATE: 20181127
